FAERS Safety Report 5967260-7 (Version None)
Quarter: 2008Q4

REPORT INFORMATION
  Report Type: 
  Country: None (occurrence: None)
  Receive Date: 20081125
  Receipt Date: 20081113
  Transmission Date: 20090506
  Serious: Yes (Hospitalization)
  Sender: FDA-Public Use
  Company Number: DE-GENENTECH-271968

PATIENT
  Sex: Male

DRUGS (2)
  1. BEVACIZUMAB [Suspect]
     Indication: COLORECTAL CANCER
     Dosage: 7.5 MG/KG, Q3W
     Route: 042
     Dates: start: 20080625
  2. CAPECITABINE [Suspect]
     Indication: COLORECTAL CANCER
     Dosage: 1250 MG, BID
     Route: 048
     Dates: start: 20080625

REACTIONS (1)
  - ENTERITIS [None]
